FAERS Safety Report 7892559-7 (Version None)
Quarter: 2011Q4

REPORT INFORMATION
  Report Type: 
  Country: None (occurrence: None)
  Receive Date: 20111102
  Receipt Date: 20111020
  Transmission Date: 20120403
  Serious: Yes (Disabling)
  Sender: FDA-Public Use
  Company Number: MIV-00242

PATIENT
  Age: 71 Year
  Sex: Male

DRUGS (3)
  1. MINOCYCLINE HCL [Suspect]
     Indication: CYST
     Dosage: BUTTOCK CYST INJECTED EVERY 2-3 WEEK SITH MINOCYCLINE OR DEXAMETHASONE
  2. PREDNISOLONE [Concomitant]
  3. DEXAMETHASONE [Suspect]
     Indication: CYST
     Dosage: BUTTOCK CYST INJECTED EVERY 2-3 WEEK SITH MINOCYCLINE OR DEXAMETHASONE

REACTIONS (4)
  - DRUG INEFFECTIVE [None]
  - FISTULA [None]
  - DISEASE RECURRENCE [None]
  - CYST [None]
